FAERS Safety Report 6494496-1 (Version None)
Quarter: 2009Q4

REPORT INFORMATION
  Report Type: 
  Country: None (occurrence: None)
  Receive Date: 20091214
  Receipt Date: 20090314
  Transmission Date: 20100525
  Serious: Yes (Other)
  Sender: FDA-Public Use
  Company Number: US-BRISTOL-MYERS SQUIBB COMPANY-14519888

PATIENT
  Sex: Female

DRUGS (9)
  1. ABILIFY [Suspect]
  2. DEXTROMETHORPHAN HYDROBROMIDE [Concomitant]
  3. MARIJUANA [Concomitant]
  4. ALCOHOL [Concomitant]
  5. CODEINE [Concomitant]
  6. OXYCODONE [Concomitant]
  7. KETAMINE HCL [Concomitant]
  8. METHYLPHENIDATE HCL [Concomitant]
  9. FLUOXETINE [Concomitant]

REACTIONS (3)
  - CONVULSION [None]
  - DELUSION [None]
  - MUSCLE TWITCHING [None]
